FAERS Safety Report 11220919 (Version 3)
Quarter: 2015Q3

REPORT INFORMATION
  Report Type: Spontaneous
  Country: AE (occurrence: AE)
  Receive Date: 20150626
  Receipt Date: 20150709
  Transmission Date: 20151125
  Serious: Yes (Disabling, Other)
  Sender: FDA-Public Use
  Company Number: PHHY2015AE075828

PATIENT
  Age: 6 Year
  Sex: Female
  Weight: 18.8 kg

DRUGS (3)
  1. EXJADE [Suspect]
     Active Substance: DEFERASIROX
     Indication: THALASSAEMIA
     Dosage: 39 MG/KG, QD
     Route: 048
     Dates: end: 20150615
  2. FOLIC ACID. [Concomitant]
     Active Substance: FOLIC ACID
     Indication: PRODUCT USED FOR UNKNOWN INDICATION
     Route: 048
  3. MULTI VITAMIN [Concomitant]
     Active Substance: VITAMINS
     Indication: THALASSAEMIA
     Dosage: UNK
     Route: 048
     Dates: start: 2000

REACTIONS (8)
  - Renal tubular necrosis [Recovering/Resolving]
  - Metabolic acidosis [Recovering/Resolving]
  - Blood bilirubin increased [Unknown]
  - Blood bicarbonate decreased [Unknown]
  - Blood creatinine increased [Unknown]
  - Lethargy [Unknown]
  - Alanine aminotransferase increased [Unknown]
  - Pyrexia [Unknown]

NARRATIVE: CASE EVENT DATE: 20150615
